FAERS Safety Report 21466807 (Version 5)
Quarter: 2022Q4

REPORT INFORMATION
  Report Type: Report from Study
  Country: CA (occurrence: CA)
  Receive Date: 20221017
  Receipt Date: 20221221
  Transmission Date: 20230112
  Serious: Yes (Hospitalization, Other)
  Sender: FDA-Public Use
  Company Number: CA-JNJFOC-20220931382

PATIENT
  Age: 70 Year
  Sex: Male
  Weight: 72.9 kg

DRUGS (2)
  1. REMICADE [Suspect]
     Active Substance: INFLIXIMAB
     Indication: Crohn^s disease
     Dosage: LAST DOSE 27/JUL/2022  ?EXPIRY DATE -28-FEB-2025.?LAST REMICADE DOSE GIVEN ON 03-OCT-2022 OF 730 MG
     Route: 042
  2. REMICADE [Suspect]
     Active Substance: INFLIXIMAB
     Dosage: PATIENT LAST INFUSION ON 18-NOV-2022 PATIENT RECEIVED REMICADE INFUSION ON 15-DEC-2022 AT DOSE OF 74
     Route: 042

REACTIONS (10)
  - Cellulitis staphylococcal [Recovered/Resolved]
  - Urinary tract infection [Recovered/Resolved]
  - COVID-19 [Recovered/Resolved]
  - Stoma creation [Recovered/Resolved]
  - Dehydration [Recovered/Resolved]
  - Poor venous access [Recovered/Resolved]
  - Asthenia [Recovered/Resolved]
  - Infusion site extravasation [Recovered/Resolved]
  - Feeling cold [Recovered/Resolved]
  - Rash erythematous [Recovering/Resolving]

NARRATIVE: CASE EVENT DATE: 20220902
